FAERS Safety Report 9382902 (Version 2)
Quarter: 2014Q1

REPORT INFORMATION
  Report Type: Spontaneous
  Country: JP (occurrence: JP)
  Receive Date: 20130703
  Receipt Date: 20140311
  Transmission Date: 20141002
  Serious: Yes (Life-Threatening)
  Sender: FDA-Public Use
  Company Number: JP-BAXTER-2013BAX025853

PATIENT
  Age: 28 Year
  Sex: Male

DRUGS (21)
  1. CELLTOP 100 MG/5 ML, SOLUTION INJECTABLE POUR PERFUSION [Suspect]
     Indication: BONE MARROW CONDITIONING REGIMEN
     Route: 065
  2. ENDOXAN 100MG [Suspect]
     Indication: BONE MARROW CONDITIONING REGIMEN
     Route: 065
  3. ENDOXAN 100MG [Suspect]
     Indication: CHROMOSOME ANALYSIS ABNORMAL
  4. ENDOXAN 100MG [Suspect]
     Indication: ACUTE LYMPHOCYTIC LEUKAEMIA
  5. FLUCONAZOLE_FLUCONAZOLE 2.00 MG/ML_SOLUTION FOR INFUSION_BAG, NON PVC [Suspect]
     Indication: CHROMOSOME ANALYSIS ABNORMAL
     Route: 065
  6. FLUCONAZOLE_FLUCONAZOLE 2.00 MG/ML_SOLUTION FOR INFUSION_BAG, NON PVC [Suspect]
     Indication: ACUTE LYMPHOCYTIC LEUKAEMIA
  7. MITOXANTRONE [Suspect]
     Indication: CHROMOSOME ANALYSIS ABNORMAL
     Route: 065
  8. MITOXANTRONE [Suspect]
     Indication: ACUTE LYMPHOCYTIC LEUKAEMIA
  9. PREDNISOLONE [Suspect]
     Indication: CHROMOSOME ANALYSIS ABNORMAL
     Route: 065
  10. PREDNISOLONE [Suspect]
     Indication: ACUTE LYMPHOCYTIC LEUKAEMIA
  11. PREDNISOLONE [Suspect]
     Indication: GRAFT VERSUS HOST DISEASE
  12. FILDESIN [Suspect]
     Indication: CHROMOSOME ANALYSIS ABNORMAL
     Route: 065
  13. FILDESIN [Suspect]
     Indication: ACUTE LYMPHOCYTIC LEUKAEMIA
  14. CYTARABINE [Suspect]
     Indication: CHROMOSOME ANALYSIS ABNORMAL
     Route: 065
  15. CYTARABINE [Suspect]
     Indication: ACUTE LYMPHOCYTIC LEUKAEMIA
  16. METHOTREXATE [Suspect]
     Indication: CHROMOSOME ANALYSIS ABNORMAL
     Route: 065
  17. METHOTREXATE [Suspect]
     Indication: ACUTE LYMPHOCYTIC LEUKAEMIA
  18. MICAFUNGIN [Suspect]
     Indication: IMMUNOSUPPRESSION
     Route: 065
  19. VORICONAZOLE [Suspect]
     Indication: IMMUNOSUPPRESSION
     Route: 065
  20. TACROLIMUS HYDRATE [Concomitant]
     Indication: IMMUNOSUPPRESSION
     Route: 065
  21. TACROLIMUS HYDRATE [Concomitant]
     Indication: PROPHYLAXIS

REACTIONS (1)
  - Zygomycosis [Recovered/Resolved]
